FAERS Safety Report 16538527 (Version 9)
Quarter: 2020Q1

REPORT INFORMATION
  Report Type: Spontaneous
  Country: US (occurrence: US)
  Receive Date: 20190708
  Receipt Date: 20200313
  Transmission Date: 20200409
  Serious: Yes (Other)
  Sender: FDA-Public Use
  Company Number: US-ELI_LILLY_AND_COMPANY-US201901004169

PATIENT
  Sex: Male

DRUGS (1)
  1. TRULICITY [Suspect]
     Active Substance: DULAGLUTIDE
     Indication: PRODUCT USED FOR UNKNOWN INDICATION
     Dosage: UNK UNK, UNKNOWN
     Route: 058

REACTIONS (7)
  - Renal pain [Unknown]
  - Vomiting [Unknown]
  - Renal failure [Unknown]
  - Diarrhoea [Unknown]
  - Eructation [Unknown]
  - Malaise [Unknown]
  - Thyroid cancer [Unknown]
